FAERS Safety Report 8842134 (Version 1)
Quarter: 2012Q4

REPORT INFORMATION
  Report Type: Spontaneous
  Country: US (occurrence: None)
  Receive Date: 20121015
  Receipt Date: 20121015
  Transmission Date: 20130627
  Serious: No
  Sender: FDA-Public Use
  Company Number: None

PATIENT

DRUGS (1)
  1. FENTANYL CITRATE [Suspect]
     Indication: PRODUCT COMPOUNDING QUALITY ISSUE

REACTIONS (3)
  - Product label on wrong product [None]
  - Product packaging issue [None]
  - Product odour abnormal [None]
